FAERS Safety Report 8282338-3 (Version None)
Quarter: 2012Q1

REPORT INFORMATION
  Report Type: 
  Country: None (occurrence: None)
  Receive Date: 20120326
  Receipt Date: 20120227
  Transmission Date: 20120608
  Serious: Yes (Hospitalization)
  Sender: FDA-Public Use
  Company Number: QR60299-02

PATIENT
  Age: 53 Year
  Sex: Female
  Weight: 49.8957 kg

DRUGS (9)
  1. PANTOPRAZOLE [Concomitant]
  2. PHENOXYMETHYLPENICILLIN [Concomitant]
  3. URSODIOL [Concomitant]
  4. RAMIPRIL [Concomitant]
  5. ACETAMINOPHEN [Concomitant]
  6. WARFARIN SODIUM [Concomitant]
  7. GAMMAPLEX [Suspect]
     Indication: IMMUNODEFICIENCY
     Dosage: IV 25GRMS EVERY 3 WEEKS
  8. TRAMADOL HCL [Concomitant]
  9. FLUTICASONE PROPRIONATE INHALER [Concomitant]

REACTIONS (2)
  - INTERNATIONAL NORMALISED RATIO DECREASED [None]
  - PULMONARY EMBOLISM [None]
